FAERS Safety Report 13497573 (Version 1)
Quarter: 2017Q2

REPORT INFORMATION
  Report Type: Spontaneous
  Country: JP (occurrence: JP)
  Receive Date: 20170428
  Receipt Date: 20170428
  Transmission Date: 20170830
  Serious: Yes (Hospitalization, Other)
  Sender: FDA-Public Use
  Company Number: JP-MYLANLABS-2017M1025489

PATIENT

DRUGS (4)
  1. ROPIVACAINE [Concomitant]
     Active Substance: ROPIVACAINE
     Indication: POSTOPERATIVE ANALGESIA
     Dosage: 3 ML/HOUR OF 0.2% CONCENTRATION
     Route: 008
  2. PROPOFOL. [Concomitant]
     Active Substance: PROPOFOL
     Indication: SEDATIVE THERAPY
     Route: 042
  3. BUPIVACAINE. [Suspect]
     Active Substance: BUPIVACAINE
     Indication: ANAESTHESIA
     Dosage: 2.5 ML 0.5% HYPERBARIC
     Route: 008
  4. LIDOCAINE. [Suspect]
     Active Substance: LIDOCAINE
     Indication: ANAESTHESIA
     Dosage: 3ML (CONC. 1%)
     Route: 008

REACTIONS (1)
  - Paraplegia [Recovered/Resolved]
